FAERS Safety Report 8792292 (Version 2)
Quarter: 2015Q2

REPORT INFORMATION
  Report Type: Report from Study
  Country: US (occurrence: US)
  Receive Date: 20120918
  Receipt Date: 20150629
  Transmission Date: 20150821
  Serious: Yes (Death)
  Sender: FDA-Public Use
  Company Number: US-ROCHE-1126540

PATIENT
  Age: 74 Year
  Sex: Female

DRUGS (15)
  1. AVASTIN [Suspect]
     Active Substance: BEVACIZUMAB
     Route: 065
  2. CARBOPLATIN. [Concomitant]
     Active Substance: CARBOPLATIN
  3. AVASTIN [Suspect]
     Active Substance: BEVACIZUMAB
     Indication: BREAST CANCER FEMALE
     Route: 065
     Dates: start: 20051213
  4. GEMZAR [Concomitant]
     Active Substance: GEMCITABINE HYDROCHLORIDE
  5. FUROSEMIDE. [Concomitant]
     Active Substance: FUROSEMIDE
  6. KLOR-CON [Concomitant]
     Active Substance: POTASSIUM CHLORIDE
  7. VICODIN [Concomitant]
     Active Substance: ACETAMINOPHEN\HYDROCODONE BITARTRATE
  8. COUMADIN [Concomitant]
     Active Substance: WARFARIN SODIUM
  9. ZOMETA [Concomitant]
     Active Substance: ZOLEDRONIC ACID
  10. ALOXI [Concomitant]
     Active Substance: PALONOSETRON HYDROCHLORIDE
     Route: 065
  11. PRILOSEC [Concomitant]
     Active Substance: OMEPRAZOLE MAGNESIUM
  12. NASACORT [Concomitant]
     Active Substance: TRIAMCINOLONE ACETONIDE
  13. DEXAMETHASONE. [Concomitant]
     Active Substance: DEXAMETHASONE
     Route: 065
  14. GEMCITABINE [Concomitant]
     Active Substance: GEMCITABINE\GEMCITABINE HYDROCHLORIDE
  15. VITAMIN B6 [Concomitant]
     Active Substance: PYRIDOXINE HYDROCHLORIDE

REACTIONS (20)
  - Pain [Unknown]
  - Fatigue [Unknown]
  - Hepatic failure [Unknown]
  - Thrombocytopenia [Unknown]
  - Nausea [Unknown]
  - Cytopenia [Unknown]
  - Weight increased [Unknown]
  - Diarrhoea [Unknown]
  - Oedema peripheral [Unknown]
  - Swelling [Unknown]
  - Metastases to liver [Unknown]
  - Hypotension [Unknown]
  - Ascites [Recovered/Resolved]
  - Death [Fatal]
  - Abdominal pain [Unknown]
  - Abdominal distension [Unknown]
  - Visual impairment [Unknown]
  - Dry eye [Unknown]
  - Metastases to bone [Unknown]
  - Off label use [Unknown]

NARRATIVE: CASE EVENT DATE: 20051221
